FAERS Safety Report 7819880-2 (Version None)
Quarter: 2011Q4

REPORT INFORMATION
  Report Type: 
  Country: None (occurrence: None)
  Receive Date: 20111018
  Receipt Date: 20110224
  Transmission Date: 20120403
  Serious: No
  Sender: FDA-Public Use
  Company Number: US-ASTRAZENECA-2011SE10559

PATIENT
  Age: 52 Year
  Sex: Female

DRUGS (1)
  1. SYMBICORT [Suspect]
     Dosage: 160 MCG/4.5 MCG, 10.2 GM, 2 PUFFS BID
     Route: 055
     Dates: start: 20101001

REACTIONS (2)
  - NERVOUSNESS [None]
  - FEELING JITTERY [None]
